FAERS Safety Report 10499483 (Version 1)
Quarter: 2014Q4

REPORT INFORMATION
  Report Type: Spontaneous
  Country: US (occurrence: US)
  Receive Date: 20141006
  Receipt Date: 20141006
  Transmission Date: 20150528
  Serious: No
  Sender: FDA-Public Use
  Company Number: US-009507513-1409USA001997

PATIENT
  Sex: Female

DRUGS (1)
  1. COPPERTONE WATER BABIES FOAMING SUNSCREEN SPF 75 PLUS [Suspect]
     Active Substance: AVOBENZONE\HOMOSALATE\OCTISALATE\OCTOCRYLENE\OXYBENZONE
     Indication: SKIN CANCER
     Dosage: UNK, UNKNOWN
     Route: 061

REACTIONS (2)
  - Expired product administered [Unknown]
  - Eye irritation [Not Recovered/Not Resolved]
